FAERS Safety Report 19941871 (Version 6)
Quarter: 2022Q3

REPORT INFORMATION
  Report Type: Report from Study
  Country: JP (occurrence: JP)
  Receive Date: 20211012
  Receipt Date: 20220816
  Transmission Date: 20221026
  Serious: Yes (Hospitalization)
  Sender: FDA-Public Use
  Company Number: JP-NOVOPROD-853457

PATIENT
  Age: 50 Year
  Sex: Male
  Weight: 81 kg

DRUGS (13)
  1. FIASP [Concomitant]
     Active Substance: INSULIN ASPART
     Dosage: 6.0 IU, TID
     Dates: start: 20201126, end: 20210627
  2. FIASP [Concomitant]
     Active Substance: INSULIN ASPART
     Dosage: 3.0 IU, QD
     Dates: start: 20220625
  3. FIASP [Concomitant]
     Active Substance: INSULIN ASPART
     Dosage: 4,0 IU, TWICE DAILY
     Dates: start: 20220625
  4. FIASP [Concomitant]
     Active Substance: INSULIN ASPART
     Dosage: 5.0 IU, QD
     Dates: start: 20200217, end: 20201125
  5. INSULIN DEGLUDEC [Suspect]
     Active Substance: INSULIN DEGLUDEC
     Indication: Type 1 diabetes mellitus
     Dosage: 17 IU, QD
     Route: 058
     Dates: start: 20210628, end: 20211020
  6. INSULIN DEGLUDEC [Suspect]
     Active Substance: INSULIN DEGLUDEC
     Dosage: DOSE DECREASED
  7. NOVOLIN R [Concomitant]
     Active Substance: INSULIN HUMAN
     Dosage: 28.7,U,1 SINGLE DOSE ONLY
     Dates: start: 20211004, end: 20211004
  8. NOVORAPID [Concomitant]
     Active Substance: INSULIN ASPART
     Dosage: UNK
     Dates: start: 20210628, end: 20211004
  9. NOVORAPID [Concomitant]
     Active Substance: INSULIN ASPART
     Dosage: DECREASED
     Dates: start: 20211004
  10. HUMALOG [Concomitant]
     Active Substance: INSULIN LISPRO
     Dosage: 5.0 U, TWICE DAILY
     Dates: start: 20200120, end: 20201125
  11. INSULIN GLARGINE [Concomitant]
     Active Substance: INSULIN GLARGINE
     Dosage: 5.0 U, ONCE DAILY
     Dates: start: 20180120, end: 20210627
  12. DAPAGLIFLOZIN [Concomitant]
     Active Substance: DAPAGLIFLOZIN
     Dosage: 5.0,MG,ONCE DAILY
     Dates: start: 20210906
  13. TRESIBA [Concomitant]
     Active Substance: INSULIN DEGLUDEC
     Dosage: 4.0,U,ONCE DAILY
     Dates: start: 20220625

REACTIONS (1)
  - Obesity [Not Recovered/Not Resolved]

NARRATIVE: CASE EVENT DATE: 20210906
